FAERS Safety Report 6615910-4 (Version None)
Quarter: 2010Q1

REPORT INFORMATION
  Report Type: 
  Country: None (occurrence: None)
  Receive Date: 20100305
  Receipt Date: 20100224
  Transmission Date: 20100710
  Serious: Yes (Other)
  Sender: FDA-Public Use
  Company Number: TR-ELI_LILLY_AND_COMPANY-TR201003000479

PATIENT
  Sex: Female

DRUGS (5)
  1. HUMULIN R [Suspect]
     Indication: DIABETES MELLITUS
     Dosage: 12 IU, EACH MORNING
     Route: 058
     Dates: start: 20080814, end: 20090125
  2. HUMULIN R [Suspect]
     Dosage: 12 IU, OTHER
     Route: 058
     Dates: start: 20080814, end: 20090125
  3. HUMULIN R [Suspect]
     Dosage: 12 IU, EACH EVENING
     Route: 058
     Dates: start: 20080814, end: 20090125
  4. HUMULIN N [Suspect]
     Indication: DIABETES MELLITUS
     Dosage: 12 IU, EACH EVENING
     Route: 058
     Dates: start: 20080814, end: 20090125
  5. FOLIC ACID [Concomitant]
     Dosage: UNK, DAILY (1/D)

REACTIONS (3)
  - ABORTION THREATENED [None]
  - BLOOD GLUCOSE INCREASED [None]
  - DRUG EXPOSURE DURING PREGNANCY [None]
